FAERS Safety Report 8537409-0 (Version None)
Quarter: 2012Q3

REPORT INFORMATION
  Report Type: 
  Country: None (occurrence: None)
  Receive Date: 20120725
  Receipt Date: 20120510
  Transmission Date: 20120928
  Serious: No
  Sender: FDA-Public Use
  Company Number: US-MYLANLABS-2012S1009878

PATIENT
  Age: 64 Year
  Sex: Male

DRUGS (1)
  1. POLYETHYLENE GLYCOL 3350 AND ELECTROLYTES [Suspect]
     Indication: COLONOSCOPY
     Route: 048
     Dates: start: 20120502, end: 20120502

REACTIONS (2)
  - DRUG INEFFECTIVE [None]
  - ABNORMAL FAECES [None]
